FAERS Safety Report 19648478 (Version 2)
Quarter: 2021Q4

REPORT INFORMATION
  Report Type: Report from Study
  Country: US (occurrence: US)
  Receive Date: 20210802
  Receipt Date: 20211117
  Transmission Date: 20220303
  Serious: Yes (Hospitalization, Other)
  Sender: FDA-Public Use
  Company Number: US-TAKEDA-US201820306

PATIENT
  Sex: Male

DRUGS (1)
  1. HUMAN IMMUNOGLOBULIN G [Suspect]
     Active Substance: HUMAN IMMUNOGLOBULIN G
     Indication: Primary immunodeficiency syndrome
     Route: 042

REACTIONS (7)
  - Fungal infection [Unknown]
  - Cardiac failure congestive [Unknown]
  - Lung disorder [Unknown]
  - Cough [Unknown]
  - Weight decreased [Unknown]
  - Depression [Unknown]
  - Blood iron decreased [Unknown]
